FAERS Safety Report 18794985 (Version 1)
Quarter: 2021Q1

REPORT INFORMATION
  Report Type: Spontaneous
  Country: US (occurrence: US)
  Receive Date: 20210127
  Receipt Date: 20210127
  Transmission Date: 20210419
  Serious: Yes (Other)
  Sender: FDA-Public Use
  Company Number: None

PATIENT
  Sex: Male

DRUGS (2)
  1. BUPROPION. [Suspect]
     Active Substance: BUPROPION
  2. NICOTINE 21 MG/24 HR PT24 [Suspect]
     Active Substance: NICOTINE

REACTIONS (2)
  - Abdominal discomfort [None]
  - Drug ineffective [None]
